FAERS Safety Report 8901593 (Version 1)
Quarter: 2012Q4

REPORT INFORMATION
  Report Type: Spontaneous
  Country: US (occurrence: None)
  Receive Date: 20121108
  Receipt Date: 20121108
  Transmission Date: 20130627
  Serious: Yes (Other)
  Sender: FDA-Public Use
  Company Number: None

PATIENT
  Age: 25 Year
  Sex: Female
  Weight: 55.79 kg

DRUGS (1)
  1. LEVAQUIN 500MG UNKNOWN [Suspect]
     Indication: BRONCHITIS
     Dosage: 1 tablet   daily   Inj
     Dates: start: 20121026, end: 20121028

REACTIONS (3)
  - Insomnia [None]
  - Anxiety [None]
  - Panic attack [None]
